FAERS Safety Report 21484605 (Version 1)
Quarter: 2022Q4

REPORT INFORMATION
  Report Type: Spontaneous
  Country: US (occurrence: US)
  Receive Date: 20221020
  Receipt Date: 20221020
  Transmission Date: 20230113
  Serious: Yes (Death, Life-Threatening, Other)
  Sender: FDA-Public Use
  Company Number: US-AMGEN-USASP2022176290

PATIENT
  Age: 82 Year
  Sex: Female

DRUGS (1)
  1. RITUXIMAB [Suspect]
     Active Substance: RITUXIMAB
     Indication: Anti-neutrophil cytoplasmic antibody positive vasculitis
     Dosage: UNK
     Route: 065

REACTIONS (6)
  - Death [Fatal]
  - Respiratory failure [Unknown]
  - Renal impairment [Unknown]
  - Drug ineffective for unapproved indication [Unknown]
  - Haemoptysis [Unknown]
  - Off label use [Unknown]
